FAERS Safety Report 17371607 (Version 1)
Quarter: 2020Q1

REPORT INFORMATION
  Report Type: Spontaneous
  Country: US (occurrence: US)
  Receive Date: 20200205
  Receipt Date: 20200205
  Transmission Date: 20200409
  Serious: Yes (Hospitalization, Other)
  Sender: FDA-Public Use
  Company Number: US-ACCORD-171588

PATIENT
  Sex: Male

DRUGS (2)
  1. ETOPOSIDE. [Suspect]
     Active Substance: ETOPOSIDE
     Indication: PROSTATE CANCER
     Dosage: STARTED ON REDUCED DOSES EIGHT YEARS PRIOR
  2. CARBOPLATIN. [Suspect]
     Active Substance: CARBOPLATIN
     Indication: PROSTATE CANCER
     Dosage: STARTED ON REDUCED DOSES EIGHT YEARS PRIOR

REACTIONS (2)
  - Off label use [Unknown]
  - Ectopic ACTH syndrome [Unknown]
